FAERS Safety Report 6668843-1 (Version None)
Quarter: 2010Q2

REPORT INFORMATION
  Report Type: 
  Country: None (occurrence: None)
  Receive Date: 20100406
  Receipt Date: 20100329
  Transmission Date: 20101027
  Serious: Yes (Hospitalization)
  Sender: FDA-Public Use
  Company Number: GB-ROCHE-581983

PATIENT
  Age: 31 Year
  Sex: Female

DRUGS (22)
  1. MYCOPHENOLATE MOFETIL [Suspect]
     Indication: STEM CELL TRANSPLANT
     Route: 065
  2. MYCOPHENOLATE MOFETIL [Suspect]
     Dosage: DOSE INCREASED.
     Route: 065
  3. RIFAMPICIN [Interacting]
     Indication: TUBERCULOSIS
     Route: 065
  4. RIFAMPICIN [Interacting]
     Dosage: DOSE INCREASED.; THERAPY REINTRODUCED
     Route: 065
  5. ETHAMBUTOL HYDROCHLORIDE [Interacting]
     Indication: TUBERCULOSIS
     Route: 065
  6. ISONIAZID [Interacting]
     Indication: TUBERCULOSIS
     Route: 065
  7. ISONIAZID [Interacting]
     Dosage: THERAPY REINTRODUCED
     Route: 065
  8. PYRAZINAMIDE [Interacting]
     Indication: TUBERCULOSIS
     Route: 065
  9. CYCLOSPORINE [Suspect]
     Route: 065
  10. CYCLOSPORINE [Suspect]
     Dosage: DOSE INCREASED.
     Route: 065
  11. FLUDARABINE PHOSPHATE [Concomitant]
     Indication: STEM CELL TRANSPLANT
  12. ALEMTUZUMAB [Suspect]
     Indication: STEM CELL TRANSPLANT
     Route: 065
  13. BUSULFEX [Suspect]
     Indication: STEM CELL TRANSPLANT
     Route: 065
  14. CYCLOPHOSPHAMIDE [Suspect]
     Indication: STEM CELL TRANSPLANT
     Route: 065
  15. CYTARABINE [Concomitant]
     Indication: STEM CELL TRANSPLANT
  16. NEUPOGEN [Concomitant]
     Indication: STEM CELL TRANSPLANT
  17. IDARUBICIN HCL [Concomitant]
     Indication: STEM CELL TRANSPLANT
  18. AMIKACIN [Concomitant]
  19. GENTAMICIN [Concomitant]
  20. MEROPENEM [Concomitant]
  21. PIPERACILLIN [Concomitant]
  22. TAZOBACTAM [Concomitant]

REACTIONS (22)
  - ABDOMINAL DISTENSION [None]
  - ABDOMINAL MASS [None]
  - ABDOMINAL PAIN [None]
  - ACID FAST BACILLI INFECTION [None]
  - BACTERIAL TEST POSITIVE [None]
  - BLOOD ALKALINE PHOSPHATASE INCREASED [None]
  - BLOOD BILIRUBIN INCREASED [None]
  - C-REACTIVE PROTEIN INCREASED [None]
  - DRUG INTERACTION [None]
  - GASTROINTESTINAL NECROSIS [None]
  - HEPATITIS [None]
  - HYPOTENSION [None]
  - ILEUS [None]
  - IMMUNOSUPPRESSANT DRUG LEVEL DECREASED [None]
  - LIVER FUNCTION TEST ABNORMAL [None]
  - LOSS OF CONSCIOUSNESS [None]
  - NAUSEA [None]
  - PURULENCE [None]
  - PYREXIA [None]
  - SYSTEMIC INFLAMMATORY RESPONSE SYNDROME [None]
  - TUBERCULOSIS [None]
  - VOMITING [None]
